FAERS Safety Report 9630592 (Version 1)
Quarter: 2013Q4

REPORT INFORMATION
  Report Type: Spontaneous
  Country: US (occurrence: None)
  Receive Date: 20131016
  Receipt Date: 20131016
  Transmission Date: 20140711
  Serious: Yes (Other)
  Sender: FDA-Public Use
  Company Number: None

PATIENT
  Age: 22 Year
  Sex: Female
  Weight: 49.9 kg

DRUGS (1)
  1. ORTHO TRI CYCLEN [Suspect]
     Indication: ACNE
     Dates: start: 201206, end: 201306

REACTIONS (3)
  - Urethral syndrome [None]
  - Pain [None]
  - Gallbladder disorder [None]
